FAERS Safety Report 11914352 (Version 9)
Quarter: 2016Q3

REPORT INFORMATION
  Report Type: Report from Study
  Country: JP (occurrence: JP)
  Receive Date: 20160113
  Receipt Date: 20160816
  Transmission Date: 20161109
  Serious: Yes (Death, Hospitalization)
  Sender: FDA-Public Use
  Company Number: JP-EISAI MEDICAL RESEARCH-EC-2016-013502

PATIENT
  Age: 74 Year
  Sex: Female
  Weight: 69 kg

DRUGS (6)
  1. HALAVEN [Suspect]
     Active Substance: ERIBULIN MESYLATE
     Indication: INVASIVE BREAST CARCINOMA
     Route: 041
     Dates: start: 20151221, end: 20151221
  2. MAGLAX [Concomitant]
     Active Substance: MAGNESIUM OXIDE
  3. MADOPAR [Concomitant]
     Active Substance: BENSERAZIDE HYDROCHLORIDE\LEVODOPA
  4. GLACTIV [Concomitant]
     Active Substance: SITAGLIPTIN
  5. AVAPRO [Concomitant]
     Active Substance: IRBESARTAN
  6. CONIEL [Concomitant]
     Active Substance: BENIDIPINE HYDROCHLORIDE

REACTIONS (6)
  - Genital infection female [Unknown]
  - Sepsis [Fatal]
  - Stomatitis [Unknown]
  - Leukopenia [Not Recovered/Not Resolved]
  - Lymphopenia [Not Recovered/Not Resolved]
  - Febrile neutropenia [Not Recovered/Not Resolved]

NARRATIVE: CASE EVENT DATE: 20151228
